FAERS Safety Report 6403371-X (Version None)
Quarter: 2009Q4

REPORT INFORMATION
  Report Type: 
  Country: None (occurrence: None)
  Receive Date: 20091016
  Receipt Date: 20091002
  Transmission Date: 20100525
  Serious: Yes (Other)
  Sender: FDA-Public Use
  Company Number: NO-MYLANLABS-2009S1017305

PATIENT
  Age: 31 Year
  Sex: Female

DRUGS (4)
  1. ZOPICLONE [Suspect]
     Indication: MANIA
     Route: 065
  2. LORAZEPAM [Suspect]
     Indication: MANIA
     Dosage: DAILY DOSE: 2.5 (E2B UNIT: 003)
     Route: 065
  3. OLANZAPINE [Suspect]
     Indication: MANIA
     Route: 065
  4. OLANZAPINE [Suspect]
     Dosage: 15 MG AT 1900, AND 5MG AT 1945 AND 2315
     Route: 065

REACTIONS (7)
  - BLOOD GLUCOSE INCREASED [None]
  - BODY TEMPERATURE DECREASED [None]
  - FALL [None]
  - HYPOTENSION [None]
  - LOSS OF CONSCIOUSNESS [None]
  - STRABISMUS [None]
  - SYNCOPE [None]
